FAERS Safety Report 4672870-3 (Version None)
Quarter: 2005Q2

REPORT INFORMATION
  Report Type: 
  Country: None (occurrence: None)
  Receive Date: 20050523
  Receipt Date: 20050517
  Transmission Date: 20051028
  Serious: Yes (Hospitalization)
  Sender: FDA-Public Use
  Company Number: COV2-2005-00009

PATIENT
  Age: 67 Year
  Sex: Female
  Weight: 63 kg

DRUGS (16)
  1. FOSRENOL [Suspect]
     Indication: HYPERPHOSPHATAEMIA
     Dosage: 500 MG 3X/DAY TID ORAL
     Route: 048
     Dates: start: 20050406, end: 20050411
  2. REGLAN [Concomitant]
  3. LOPRESSOR (METOPROLOLL TARTRATE) [Concomitant]
  4. TRAVATAN (TRAVOPOST) [Concomitant]
  5. PENLAC (CICLOPIRO) [Concomitant]
  6. ECONAZOLE NITRATE [Concomitant]
  7. BENICAR [Concomitant]
  8. BOOST PLUS [Concomitant]
  9. NEPHROCAPS (VITAMINS NOS, FOLIC ACID) [Concomitant]
  10. QUINIDINE SULFATE [Concomitant]
  11. NORVASC/DEN/(AMLODIPINE BESILATE) [Concomitant]
  12. PLAVIX [Concomitant]
  13. IMODIUM [Concomitant]
  14. LEXAPRO [Concomitant]
  15. TIMOLOL MALEATE [Concomitant]
  16. AZOPT [Concomitant]

REACTIONS (5)
  - CONDITION AGGRAVATED [None]
  - DIALYSIS [None]
  - DIARRHOEA [None]
  - HYPERKALAEMIA [None]
  - LOSS OF CONSCIOUSNESS [None]
